FAERS Safety Report 6253038-6 (Version None)
Quarter: 2009Q3

REPORT INFORMATION
  Report Type: 
  Country: None (occurrence: None)
  Receive Date: 20090701
  Receipt Date: 20090622
  Transmission Date: 20100115
  Serious: Yes (Other)
  Sender: FDA-Public Use
  Company Number: US-PFIZER INC-2009231113

PATIENT
  Sex: Female
  Weight: 47.627 kg

DRUGS (2)
  1. CYTOTEC [Suspect]
     Indication: BIOPSY
     Dosage: UNIT DOSE: UNKNOWN;
  2. ALLEGRA [Concomitant]

REACTIONS (3)
  - CONVULSION [None]
  - OFF LABEL USE [None]
  - RESPIRATORY ARREST [None]
